FAERS Safety Report 6566233-3 (Version None)
Quarter: 2010Q1

REPORT INFORMATION
  Report Type: 
  Country: None (occurrence: None)
  Receive Date: 20100202
  Receipt Date: 20100126
  Transmission Date: 20100710
  Serious: Yes (Other)
  Sender: FDA-Public Use
  Company Number: BR-PFIZER INC-2010010142

PATIENT
  Sex: Female

DRUGS (1)
  1. DEPO-PROVERA [Suspect]
     Indication: CONTRACEPTION
     Dosage: UNK
     Route: 030
     Dates: start: 20080619

REACTIONS (5)
  - APPLICATION SITE ABSCESS [None]
  - GAIT DISTURBANCE [None]
  - INJECTION SITE INDURATION [None]
  - INJECTION SITE SWELLING [None]
  - WRONG TECHNIQUE IN DRUG USAGE PROCESS [None]
